FAERS Safety Report 24459853 (Version 1)
Quarter: 2024Q4

REPORT INFORMATION
  Report Type: Spontaneous
  Country: CN (occurrence: CN)
  Receive Date: 20241018
  Receipt Date: 20241018
  Transmission Date: 20250115
  Serious: No
  Sender: ROCHE
  Company Number: CN-ROCHE-3568266

PATIENT
  Age: 9 Year
  Sex: Female

DRUGS (4)
  1. RITUXIMAB [Suspect]
     Active Substance: RITUXIMAB
     Indication: Nephrotic syndrome
     Dosage: FIRST DOSE
     Route: 041
     Dates: start: 202102
  2. RITUXIMAB [Suspect]
     Active Substance: RITUXIMAB
     Route: 042
     Dates: start: 202111
  3. TACROLIMUS [Concomitant]
     Active Substance: TACROLIMUS
     Dosage: 5.5 X 103 - 9.3 X 103 NG/
  4. PREDNISONE [Concomitant]
     Active Substance: PREDNISONE

REACTIONS (2)
  - Serum sickness [Recovered/Resolved]
  - Gastrointestinal infection [Unknown]
